FAERS Safety Report 7280458-3 (Version None)
Quarter: 2011Q1

REPORT INFORMATION
  Report Type: 
  Country: None (occurrence: None)
  Receive Date: 20110208
  Receipt Date: 20110131
  Transmission Date: 20110831
  Serious: Yes (Death)
  Sender: FDA-Public Use
  Company Number: US-ROCHE-713959

PATIENT
  Sex: Female
  Weight: 53 kg

DRUGS (6)
  1. GEMCITABINE HYDROCHLORIDE [Suspect]
     Dosage: 1957 MG, 1/WEEK
     Route: 042
     Dates: start: 20060809, end: 20060911
  2. GEMCITABINE HYDROCHLORIDE [Suspect]
     Indication: NON-SMALL CELL LUNG CANCER
     Dosage: 1957 MG, 1/WEEK
     Route: 042
     Dates: start: 20060809, end: 20060911
  3. BEVACIZUMAB [Suspect]
     Indication: NON-SMALL CELL LUNG CANCER
     Dosage: 879 MG, Q3W
     Route: 042
     Dates: start: 20060809, end: 20060809
  4. BEVACIZUMAB [Suspect]
     Dosage: 879 MG, Q3W
     Route: 042
     Dates: start: 20060809, end: 20060809
  5. CARBOPLATIN [Suspect]
     Indication: NON-SMALL CELL LUNG CANCER
     Dosage: 406 MG, Q3W
     Route: 042
     Dates: start: 20060809, end: 20060911
  6. CARBOPLATIN [Suspect]
     Dosage: 406 MG, Q3W
     Route: 042
     Dates: start: 20060809, end: 20060911

REACTIONS (1)
  - DEATH [None]
